FAERS Safety Report 15372051 (Version 5)
Quarter: 2019Q1

REPORT INFORMATION
  Report Type: Report from Study
  Country: FR (occurrence: FR)
  Receive Date: 20180911
  Receipt Date: 20190222
  Transmission Date: 20190417
  Serious: Yes (Hospitalization, Other)
  Sender: FDA-Public Use
  Company Number: FR-OTSUKA-2018_030439

PATIENT
  Age: 70 Year
  Sex: Male

DRUGS (1)
  1. DECITABINE. [Suspect]
     Active Substance: DECITABINE
     Indication: ACUTE MYELOID LEUKAEMIA
     Dosage: 1 IN 1 DAY CYCLE 1-CYCLE 2 AT 33 MG AND  CYCLE 3 AT 32.5 MG
     Route: 042
     Dates: start: 20180618

REACTIONS (4)
  - Febrile bone marrow aplasia [Recovered/Resolved]
  - Anal abscess [Recovered/Resolved]
  - Febrile bone marrow aplasia [Recovered/Resolved]
  - Febrile bone marrow aplasia [Recovered/Resolved]

NARRATIVE: CASE EVENT DATE: 20180822
